FAERS Safety Report 10952267 (Version 1)
Quarter: 2015Q1

REPORT INFORMATION
  Report Type: Spontaneous
  Country: US (occurrence: None)
  Receive Date: 20150323
  Receipt Date: 20150323
  Transmission Date: 20150721
  Serious: No
  Sender: FDA-Public Use
  Company Number: VIT-2014-02556

PATIENT
  Age: 31 Year
  Sex: Female

DRUGS (4)
  1. VELPHORO [Suspect]
     Active Substance: FERRIC OXYHYDROXIDE
     Indication: HYPERPHOSPHATAEMIA
     Route: 048
     Dates: start: 20141121
  2. TUMS [Concomitant]
     Active Substance: CALCIUM CARBONATE
  3. SLOW FE IRON (FERROUS SULFATE, IRON) [Concomitant]
  4. ARANESP [Concomitant]
     Active Substance: DARBEPOETIN ALFA

REACTIONS (8)
  - Blood phosphorus increased [None]
  - Drug administration error [None]
  - Treatment noncompliance [None]
  - Nausea [None]
  - Weight decreased [None]
  - Blood calcium increased [None]
  - Faeces discoloured [None]
  - Serum ferritin decreased [None]

NARRATIVE: CASE EVENT DATE: 201411
